FAERS Safety Report 13874945 (Version 1)
Quarter: 2017Q3

REPORT INFORMATION
  Report Type: Spontaneous
  Country: US (occurrence: US)
  Receive Date: 20170816
  Receipt Date: 20170816
  Transmission Date: 20171127
  Serious: No
  Sender: FDA-Public Use
  Company Number: US-ROCHE-1270468

PATIENT
  Age: 63 Year
  Sex: Female

DRUGS (2)
  1. LUCENTIS [Suspect]
     Active Substance: RANIBIZUMAB
     Indication: RETINAL VEIN OCCLUSION
     Dosage: MOST RECENT DOSES ON 02/JUL/2013 AND 30/AUG/2013; IN THE LEFT EYE
     Route: 050
     Dates: start: 20130607
  2. INSULIN [Concomitant]
     Active Substance: INSULIN NOS
     Route: 065

REACTIONS (5)
  - Visual field defect [Recovering/Resolving]
  - Feeling abnormal [Unknown]
  - Headache [Unknown]
  - Vision blurred [Recovering/Resolving]
  - Arthralgia [Unknown]

NARRATIVE: CASE EVENT DATE: 20130830
